FAERS Safety Report 4326264-0 (Version None)
Quarter: 2004Q1

REPORT INFORMATION
  Report Type: 
  Country: None (occurrence: None)
  Receive Date: 20040329
  Receipt Date: 20030130
  Transmission Date: 20041129
  Serious: Yes (Hospitalization, Disabling)
  Sender: FDA-Public Use
  Company Number: US-MERCK-0301USA03185

PATIENT
  Age: 62 Year
  Sex: Male
  Weight: 79 kg

DRUGS (11)
  1. VIOXX [Suspect]
     Indication: BACK PAIN
     Route: 048
     Dates: start: 19990101, end: 20010701
  2. VIOXX [Suspect]
     Route: 048
     Dates: start: 20010701, end: 20010801
  3. SAW PALMETTO [Concomitant]
     Route: 065
  4. AMBIEN [Concomitant]
     Route: 065
  5. TYLENOL (CAPLET) [Concomitant]
     Route: 065
  6. NORVASC [Concomitant]
     Indication: HYPERTENSION
     Route: 048
  7. ASPIRIN [Concomitant]
     Route: 048
  8. DICYCLOMINE HYDROCHLORIDE [Concomitant]
     Route: 065
  9. PREVACID [Concomitant]
     Indication: DYSPEPSIA
     Route: 065
  10. VIOXX [Suspect]
     Indication: ARTHRITIS
     Route: 048
     Dates: start: 19990101, end: 20010701
  11. VIOXX [Suspect]
     Route: 048
     Dates: start: 20010701, end: 20010801

REACTIONS (34)
  - ACUTE MYOCARDIAL INFARCTION [None]
  - ANAEMIA [None]
  - BENIGN PROSTATIC HYPERPLASIA [None]
  - BLOOD CHOLESTEROL INCREASED [None]
  - BRADYCARDIA [None]
  - CELLULITIS [None]
  - CHEST WALL PAIN [None]
  - CORONARY ARTERY ATHEROSCLEROSIS [None]
  - CORONARY ARTERY DISEASE [None]
  - CORONARY ARTERY STENOSIS [None]
  - CUTIS LAXA [None]
  - DRESSLER'S SYNDROME [None]
  - DYSPNOEA [None]
  - ELECTROCARDIOGRAM T WAVE ABNORMAL [None]
  - ERECTILE DYSFUNCTION [None]
  - GASTROOESOPHAGEAL REFLUX DISEASE [None]
  - GLAUCOMA [None]
  - HYPERGLYCAEMIA [None]
  - HYPERHIDROSIS [None]
  - HYPERLIPIDAEMIA [None]
  - HYPERTENSION [None]
  - HYPOKALAEMIA [None]
  - LIBIDO DECREASED [None]
  - MITRAL VALVE INCOMPETENCE [None]
  - MYOCARDIAL INFARCTION [None]
  - NOCTURIA [None]
  - OCULAR HYPERTENSION [None]
  - OSTEOARTHRITIS [None]
  - PERICARDITIS [None]
  - PLEURAL EFFUSION [None]
  - PROSTATITIS [None]
  - SLEEP APNOEA SYNDROME [None]
  - SNORING [None]
  - TESTICULAR PAIN [None]
